FAERS Safety Report 5672272-7 (Version None)
Quarter: 2008Q2

REPORT INFORMATION
  Report Type: 
  Country: None (occurrence: None)
  Receive Date: 20080219
  Receipt Date: 20071210
  Transmission Date: 20081010
  Serious: No
  Sender: FDA-Public Use
  Company Number: TPA2007A02477

PATIENT
  Age: 54 Year
  Sex: Male
  Weight: 65.7716 kg

DRUGS (2)
  1. ROZEREM [Suspect]
     Dosage: PER ORAL
     Route: 048
  2. XANAX [Concomitant]

REACTIONS (1)
  - DRUG INEFFECTIVE [None]
